FAERS Safety Report 7574112 (Version 4)
Quarter: 2014Q1

REPORT INFORMATION
  Report Type: Spontaneous
  Country: US (occurrence: US)
  Receive Date: 20100907
  Receipt Date: 20140120
  Transmission Date: 20141002
  Serious: Yes (Hospitalization)
  Sender: FDA-Public Use
  Company Number: US-BAYER-201032652NA

PATIENT
  Age: 35 Year
  Sex: Female
  Weight: 79 kg

DRUGS (4)
  1. YAZ [Suspect]
     Indication: PREMENSTRUAL DYSPHORIC DISORDER
     Route: 048
     Dates: start: 200701, end: 201005
  2. ETHINYLESTRADIOL W/NORGESTIMATE [Concomitant]
     Dosage: UNK
     Dates: end: 20080114
  3. ORTHO TRI-CYCLEN [Concomitant]
  4. PROZAC [Concomitant]

REACTIONS (5)
  - Cholecystitis chronic [None]
  - Cholelithiasis [None]
  - Abdominal pain upper [None]
  - Nausea [None]
  - Pain [None]
